FAERS Safety Report 8897752 (Version 1)
Quarter: 2012Q4

REPORT INFORMATION
  Report Type: 
  Country: US (occurrence: US)
  Receive Date: 20121109
  Receipt Date: 20121109
  Transmission Date: 20130627
  Serious: Yes (Other)
  Sender: FDA-Public Use
  Company Number: US-ELI_LILLY_AND_COMPANY-US201211000134

PATIENT
  Sex: Female

DRUGS (3)
  1. HUMALOG LISPRO [Suspect]
     Indication: DIABETES MELLITUS
     Dosage: UNK UNK, prn
     Dates: start: 2010
  2. GLUCOPHAGE [Concomitant]
     Dosage: UNK, unknown
  3. LEVEMIR [Concomitant]
     Dosage: UNK, unknown

REACTIONS (5)
  - Breast cancer [Not Recovered/Not Resolved]
  - Blood glucose increased [Unknown]
  - Tooth loss [Unknown]
  - Onychomadesis [Unknown]
  - Drug dose omission [Unknown]
